FAERS Safety Report 8470507-9 (Version None)
Quarter: 2012Q2

REPORT INFORMATION
  Report Type: 
  Country: None (occurrence: None)
  Receive Date: 20120627
  Receipt Date: 20110916
  Transmission Date: 20120825
  Serious: No
  Sender: FDA-Public Use
  Company Number: US-MYLANLABS-2011S1019628

PATIENT
  Age: 67 Year
  Sex: Female
  Weight: 72.58 kg

DRUGS (2)
  1. DUONEB [Concomitant]
  2. PERFOROMIST [Suspect]
     Indication: EMPHYSEMA
     Route: 055

REACTIONS (2)
  - DRUG EFFECT DECREASED [None]
  - EMPHYSEMA [None]
